FAERS Safety Report 7125091-9 (Version None)
Quarter: 2010Q4

REPORT INFORMATION
  Report Type: 
  Country: None (occurrence: None)
  Receive Date: 20101129
  Receipt Date: 20101014
  Transmission Date: 20110411
  Serious: Yes (Hospitalization, Other)
  Sender: FDA-Public Use
  Company Number: US-AMGEN-USASP2010000183

PATIENT

DRUGS (1)
  1. ENBREL [Suspect]
     Indication: PSORIATIC ARTHROPATHY
     Dates: start: 20030301

REACTIONS (4)
  - FALL [None]
  - FEMUR FRACTURE [None]
  - HIP ARTHROPLASTY [None]
  - NASOPHARYNGITIS [None]
